FAERS Safety Report 9219410 (Version 3)
Quarter: 2013Q2

REPORT INFORMATION
  Report Type: Spontaneous
  Country: US (occurrence: US)
  Receive Date: 20130409
  Receipt Date: 20130426
  Transmission Date: 20140414
  Serious: Yes (Hospitalization, Other)
  Sender: FDA-Public Use
  Company Number: US-PFIZER INC-2013108756

PATIENT
  Age: 68 Year
  Sex: Female
  Weight: 64 kg

DRUGS (14)
  1. MOTRIN [Suspect]
     Indication: PAIN
     Dosage: 1800 MG A DAY
     Dates: start: 20080826
  2. PERTUZUMAB [Suspect]
     Indication: BREAST CANCER METASTATIC
     Dosage: EVERY 21 DAYS
     Route: 042
     Dates: start: 20080826
  3. TRASTUZUMAB [Suspect]
     Indication: BREAST CANCER METASTATIC
     Dosage: 6 MG/KG, EVERY 21 DAYS
     Route: 042
     Dates: start: 20080826
  4. DOCETAXEL [Suspect]
     Indication: BREAST CANCER METASTATIC
     Dosage: 61.5 MG/M2, EVERY 21 DAYS
     Route: 042
     Dates: start: 20080826
  5. ASPIRIN [Concomitant]
     Route: 065
     Dates: start: 20000630
  6. CALCIUM CARBONATE [Concomitant]
     Dosage: 20 MG
     Route: 065
     Dates: start: 20000630
  7. SIMVASTATIN [Concomitant]
     Dosage: 20 MG, UNK
     Route: 048
     Dates: start: 20000630
  8. LISINOPRIL [Concomitant]
     Dosage: 10 MG
     Dates: start: 20000630
  9. NITROGLYCERIN [Concomitant]
     Indication: CHEST PAIN
     Dosage: 0.4MG , 5 MINS X 3PRN
     Route: 060
  10. COREG [Concomitant]
     Dosage: 18.75 MG
     Dates: start: 2009
  11. GABAPENTIN [Concomitant]
     Dosage: 800 MG
  12. PRILOSEC [Concomitant]
     Dates: start: 20110211
  13. IBUPROFEN [Concomitant]
  14. GALENIC /CALCIUM/VITAMIN D/ [Concomitant]

REACTIONS (3)
  - Overdose [Not Recovered/Not Resolved]
  - Duodenal ulcer haemorrhage [Recovered/Resolved]
  - Haemoglobin decreased [Unknown]
